FAERS Safety Report 5480296-8 (Version None)
Quarter: 2007Q3

REPORT INFORMATION
  Report Type: 
  Country: None (occurrence: None)
  Receive Date: 20070913
  Receipt Date: 20061003
  Transmission Date: 20080115
  Serious: Yes (Other)
  Sender: FDA-Public Use
  Company Number: PHEH2006US12492

PATIENT
  Age: 81 Year
  Sex: Female

DRUGS (3)
  1. DIOVAN [Suspect]
     Indication: HYPERTENSION
     Dosage: 80 MG, QD, ORAL 160 MG, QD, ORAL
     Route: 048
     Dates: start: 20060619, end: 20060926
  2. DIOVAN [Suspect]
     Indication: HYPERTENSION
     Dosage: 80 MG, QD, ORAL 160 MG, QD, ORAL
     Route: 048
     Dates: start: 20060927, end: 20061002
  3. ANTIHISTAMINES (NO INGREDIENTS/SUBSTANCES) [Concomitant]

REACTIONS (3)
  - ARTHRALGIA [None]
  - BLOOD PRESSURE INCREASED [None]
  - DRUG INEFFECTIVE [None]
